FAERS Safety Report 6506000-X (Version None)
Quarter: 2009Q4

REPORT INFORMATION
  Report Type: 
  Country: None (occurrence: None)
  Receive Date: 20091218
  Receipt Date: 20091207
  Transmission Date: 20100525
  Serious: Yes (Hospitalization)
  Sender: FDA-Public Use
  Company Number: FR-PFIZER INC-2009297840

PATIENT
  Age: 98 Year
  Sex: Female

DRUGS (5)
  1. ZOLOFT [Suspect]
     Indication: DEPRESSION
     Dosage: 50 MG, 1X/DAY
     Route: 048
     Dates: end: 20091020
  2. PREVISCAN [Suspect]
     Indication: PHLEBITIS
     Dosage: ACCORDING TO THE LEVEL OF INR
     Route: 048
     Dates: start: 20090801, end: 20091020
  3. NEURONTIN [Concomitant]
     Dosage: UNK
  4. LASILIX [Concomitant]
     Dosage: UNK
  5. ATHYMIL [Concomitant]
     Dosage: UNK

REACTIONS (2)
  - ANAEMIA [None]
  - INTERNATIONAL NORMALISED RATIO INCREASED [None]
